FAERS Safety Report 13755452 (Version 3)
Quarter: 2017Q4

REPORT INFORMATION
  Report Type: Spontaneous
  Country: US (occurrence: US)
  Receive Date: 20170714
  Receipt Date: 20171120
  Transmission Date: 20180320
  Serious: Yes (Death)
  Sender: FDA-Public Use
  Company Number: US-PFIZER INC-2017305288

PATIENT
  Age: 84 Year
  Sex: Male
  Weight: 74.84 kg

DRUGS (3)
  1. LOSARTAN. [Concomitant]
     Active Substance: LOSARTAN
     Indication: HYPERTENSION
     Dosage: 50 MG, 1X/DAY (100 MG HALF TABLET ONCE A DAY BY MOUTH)
     Route: 048
  2. XALKORI [Suspect]
     Active Substance: CRIZOTINIB
     Indication: LUNG NEOPLASM MALIGNANT
     Dosage: 250 MG CAPSULE ONE IN THE MORNING AND ONE AT NIGHT
     Dates: start: 2017
  3. XARELTO [Concomitant]
     Active Substance: RIVAROXABAN
     Indication: THROMBOSIS
     Dosage: 20 MG, DAILY (ONE TABLET EVERY EVENING)
     Dates: start: 2017

REACTIONS (3)
  - Death [Fatal]
  - Nausea [Recovering/Resolving]
  - Drug dose omission [Unknown]

NARRATIVE: CASE EVENT DATE: 20170930
